FAERS Safety Report 7079776-3 (Version None)
Quarter: 2010Q4

REPORT INFORMATION
  Report Type: 
  Country: None (occurrence: None)
  Receive Date: 20101102
  Receipt Date: 20101027
  Transmission Date: 20110411
  Serious: Yes (Hospitalization, Congenital Anomaly, Other)
  Sender: FDA-Public Use
  Company Number: US-PFIZER INC-2010092580

PATIENT
  Sex: Male

DRUGS (6)
  1. ZOLOFT [Suspect]
     Dosage: UNK
     Route: 064
  2. NEXIUM [Concomitant]
     Dosage: UNK
  3. CYTOMEL [Concomitant]
     Dosage: UNK
  4. VERAPAMIL [Concomitant]
     Dosage: UNK
  5. MELLARIL [Concomitant]
     Dosage: UNK
  6. AMBIEN [Concomitant]
     Dosage: UNK

REACTIONS (11)
  - ATRIAL SEPTAL DEFECT [None]
  - BAND NEUTROPHIL COUNT INCREASED [None]
  - CARDIOMEGALY [None]
  - DRUG EXPOSURE DURING PREGNANCY [None]
  - FALLOT'S TETRALOGY [None]
  - HYPERBILIRUBINAEMIA [None]
  - INGUINAL HERNIA [None]
  - NEONATAL TACHYPNOEA [None]
  - PATENT DUCTUS ARTERIOSUS [None]
  - SEPSIS [None]
  - SEPSIS NEONATAL [None]
